FAERS Safety Report 10874157 (Version 2)
Quarter: 2015Q1

REPORT INFORMATION
  Report Type: Spontaneous
  Country: US (occurrence: US)
  Receive Date: 20150227
  Receipt Date: 20150317
  Transmission Date: 20150721
  Serious: Yes (Death, Hospitalization, Other)
  Sender: FDA-Public Use
  Company Number: US-UNITED THERAPEUTICS-UNT-2015-001236

PATIENT
  Age: 26 Year
  Sex: Female
  Weight: 57.6 kg

DRUGS (9)
  1. PREDNISONE. [Suspect]
     Active Substance: PREDNISONE
     Indication: THYROID DISORDER
  2. REMODULIN [Suspect]
     Active Substance: TREPROSTINIL
     Dosage: 0.171 ?G/KG, CONTINUING
     Route: 041
     Dates: start: 20101110
  3. REVATIO [Concomitant]
     Active Substance: SILDENAFIL CITRATE
     Indication: PRODUCT USED FOR UNKNOWN INDICATION
  4. REMODULIN [Suspect]
     Active Substance: TREPROSTINIL
     Dosage: 0.171 ?G/KG, CONTINUING
     Route: 041
  5. COUMADIN [Concomitant]
     Active Substance: WARFARIN SODIUM
     Indication: PRODUCT USED FOR UNKNOWN INDICATION
  6. REMODULIN [Suspect]
     Active Substance: TREPROSTINIL
     Indication: PULMONARY HYPERTENSION
     Dosage: 0.176 ?G/KG, CONTINUING
     Route: 041
     Dates: start: 20101101
  7. REMODULIN [Suspect]
     Active Substance: TREPROSTINIL
     Dosage: 0.176 ?G/KG, CONTINUING
     Route: 041
  8. REMODULIN [Suspect]
     Active Substance: TREPROSTINIL
     Dosage: 0.176 ?G/KG, CONTINUING
     Route: 041
  9. AMIODARONE [Concomitant]
     Active Substance: AMIODARONE
     Indication: PRODUCT USED FOR UNKNOWN INDICATION

REACTIONS (15)
  - Asthenia [Unknown]
  - Candida infection [Unknown]
  - Fungal infection [Unknown]
  - Abdominal distension [Unknown]
  - Urinary tract infection [Unknown]
  - Oedema [Not Recovered/Not Resolved]
  - Clostridium difficile infection [Unknown]
  - Headache [Unknown]
  - Localised oedema [Unknown]
  - Fluid retention [Unknown]
  - Thyroid disorder [Unknown]
  - Abdominal pain upper [Unknown]
  - Oedema peripheral [Unknown]
  - Death [Fatal]
  - Viral diarrhoea [Unknown]

NARRATIVE: CASE EVENT DATE: 201501
